FAERS Safety Report 5693768-8 (Version None)
Quarter: 2008Q2

REPORT INFORMATION
  Report Type: 
  Country: None (occurrence: None)
  Receive Date: 20080403
  Receipt Date: 20080327
  Transmission Date: 20081010
  Serious: Yes (Hospitalization)
  Sender: FDA-Public Use
  Company Number: FR-JNJFOC-20080400002

PATIENT
  Sex: Male
  Weight: 34 kg

DRUGS (4)
  1. RISPERDAL [Suspect]
     Indication: ABNORMAL BEHAVIOUR
     Route: 048
     Dates: start: 20070112, end: 20070123
  2. LEPTICUR [Suspect]
     Indication: EXTRAPYRAMIDAL DISORDER
     Route: 048
  3. LEPTICUR [Suspect]
     Route: 030
  4. TERCIAN [Suspect]
     Indication: ABNORMAL BEHAVIOUR
     Route: 048

REACTIONS (9)
  - AGITATION [None]
  - CONFUSIONAL STATE [None]
  - DISORIENTATION [None]
  - ELECTROENCEPHALOGRAM ABNORMAL [None]
  - HALLUCINATION [None]
  - HEADACHE [None]
  - MUSCULOSKELETAL STIFFNESS [None]
  - URINARY INCONTINENCE [None]
  - VOMITING [None]
